FAERS Safety Report 8187211-7 (Version None)
Quarter: 2012Q1

REPORT INFORMATION
  Report Type: 
  Country: None (occurrence: None)
  Receive Date: 20120306
  Receipt Date: 20120222
  Transmission Date: 20120608
  Serious: Yes (Life-Threatening, Other)
  Sender: FDA-Public Use
  Company Number: JP-FRI-1000028810

PATIENT
  Sex: Male
  Weight: 57 kg

DRUGS (5)
  1. GANATON [Concomitant]
     Route: 048
  2. LEXAPRO [Suspect]
     Indication: DEPRESSION
     Dosage: 10 MG
     Route: 048
     Dates: start: 20120110, end: 20120209
  3. KEISHI-KA-SHAKUYAKU-TO [Concomitant]
     Route: 048
     Dates: start: 20120110, end: 20120209
  4. YODEL-S [Concomitant]
     Route: 048
  5. ZOLPIDEM [Concomitant]
     Route: 048

REACTIONS (4)
  - PNEUMOTHORAX [None]
  - INTERSTITIAL LUNG DISEASE [None]
  - PNEUMONIA ASPIRATION [None]
  - PLEURAL EFFUSION [None]
